FAERS Safety Report 10713647 (Version 4)
Quarter: 2020Q1

REPORT INFORMATION
  Report Type: Report from Study
  Country: US (occurrence: US)
  Receive Date: 20150115
  Receipt Date: 20200324
  Transmission Date: 20200409
  Serious: Yes (Disabling, Other)
  Sender: FDA-Public Use
  Company Number: US-SA-2013SA108070

PATIENT
  Age: 67 Year
  Sex: Female

DRUGS (5)
  1. OCREVUS [Suspect]
     Active Substance: OCRELIZUMAB
     Dosage: 1 INFUSION
     Dates: start: 201709, end: 201709
  2. OCREVUS [Suspect]
     Active Substance: OCRELIZUMAB
     Dosage: 2 INFUSIONS
     Dates: start: 2018, end: 2018
  3. OCREVUS [Suspect]
     Active Substance: OCRELIZUMAB
     Dosage: 2 INFUSIONS
     Dates: start: 2019
  4. TERIFLUNOMIDE. [Suspect]
     Active Substance: TERIFLUNOMIDE
     Indication: MULTIPLE SCLEROSIS
     Dosage: 14 MG,QD
     Route: 048
     Dates: start: 20131001, end: 20170101
  5. RITUXAN [Concomitant]
     Active Substance: RITUXIMAB
     Dosage: UNK
     Dates: start: 201703

REACTIONS (16)
  - Condition aggravated [Unknown]
  - Mobility decreased [Not Recovered/Not Resolved]
  - Nausea [Recovered/Resolved]
  - Hypertension [Unknown]
  - Condition aggravated [Not Recovered/Not Resolved]
  - Asthenia [Not Recovered/Not Resolved]
  - Paraesthesia [Unknown]
  - Constipation [Unknown]
  - Impaired work ability [Unknown]
  - Dizziness [Recovered/Resolved]
  - Fatigue [Unknown]
  - Coordination abnormal [Unknown]
  - Alopecia [Unknown]
  - Multiple sclerosis relapse [Recovering/Resolving]
  - Feeling abnormal [Unknown]
  - Hemiparesis [Unknown]

NARRATIVE: CASE EVENT DATE: 2014
